FAERS Safety Report 6474504-4 (Version None)
Quarter: 2009Q4

REPORT INFORMATION
  Report Type: 
  Country: None (occurrence: None)
  Receive Date: 20091204
  Receipt Date: 20091124
  Transmission Date: 20100525
  Serious: Yes (Hospitalization)
  Sender: FDA-Public Use
  Company Number: CA-JNJFOC-20091108130

PATIENT
  Sex: Female
  Weight: 72.7 kg

DRUGS (1)
  1. REMICADE [Suspect]
     Indication: COLITIS ULCERATIVE
     Dosage: RECEIVED A TOTAL OF 12 DOSES
     Route: 042

REACTIONS (3)
  - FEMALE STERILISATION [None]
  - GASTROINTESTINAL DISORDER [None]
  - OVARIAN CYSTECTOMY [None]
